FAERS Safety Report 9226490 (Version 2)
Quarter: 2013Q3

REPORT INFORMATION
  Report Type: Spontaneous
  Country: FR (occurrence: FR)
  Receive Date: 20130412
  Receipt Date: 20130729
  Transmission Date: 20140515
  Serious: Yes (Hospitalization)
  Sender: FDA-Public Use
  Company Number: FR-AMGEN-FRASP2013025315

PATIENT
  Age: 53 Year
  Sex: Male

DRUGS (1)
  1. ENBREL [Suspect]
     Indication: PSORIASIS
     Dosage: 50 MG, 2X/WEEK
     Route: 058
     Dates: start: 20130201, end: 20130221

REACTIONS (6)
  - Eczema [Recovered/Resolved]
  - Oedema peripheral [Recovered/Resolved]
  - Asthenia [Recovered/Resolved]
  - Subcutaneous abscess [Recovered/Resolved]
  - Cellulitis staphylococcal [Recovered/Resolved]
  - Herpes zoster [Recovered/Resolved]
